FAERS Safety Report 4350781-0 (Version None)
Quarter: 2004Q2

REPORT INFORMATION
  Report Type: 
  Country: None (occurrence: None)
  Receive Date: 20040430
  Receipt Date: 20030825
  Transmission Date: 20050107
  Serious: Yes (Hospitalization)
  Sender: FDA-Public Use
  Company Number: ES-ROCHE-345235

PATIENT
  Age: 58 Year
  Sex: Male
  Weight: 58 kg

DRUGS (6)
  1. PEG-INTERFERON ALFA 2A (RO 25-8310) [Suspect]
     Route: 058
     Dates: start: 20020906
  2. RIBAVIRIN [Suspect]
     Route: 048
     Dates: start: 20021105
  3. ZIAGEN [Concomitant]
     Dosage: DOSE REPORTED AS 300
     Route: 048
     Dates: start: 20000328
  4. SUSTIVA [Concomitant]
     Dosage: DOSE REPORTED AS 600 QD.
     Route: 048
     Dates: start: 20000328
  5. VIREAD [Concomitant]
     Dosage: DOSE DESCRIBED AS 245 QD.
     Route: 048
     Dates: start: 20030408
  6. LOPID [Concomitant]
     Dosage: DOSE REPORTED AS 900.
     Route: 048
     Dates: start: 20021008

REACTIONS (1)
  - APPENDICITIS [None]
